FAERS Safety Report 18554157 (Version 3)
Quarter: 2021Q1

REPORT INFORMATION
  Report Type: Spontaneous
  Country: US (occurrence: US)
  Receive Date: 20201127
  Receipt Date: 20210122
  Transmission Date: 20210419
  Serious: Yes (Hospitalization)
  Sender: FDA-Public Use
  Company Number: US-HORIZON-2020HZN01781

PATIENT
  Age: 39 Year
  Sex: Female

DRUGS (4)
  1. EYE DROPS [Concomitant]
     Active Substance: UNSPECIFIED INGREDIENT
  2. PROPANOLOL [Concomitant]
     Active Substance: PROPRANOLOL HYDROCHLORIDE
  3. TEPEZZA [Suspect]
     Active Substance: TEPROTUMUMAB-TRBW
     Indication: BASEDOW^S DISEASE
     Route: 050
     Dates: start: 20201104
  4. TAPAZOLE [Suspect]
     Active Substance: METHIMAZOLE
     Indication: THYROID DISORDER

REACTIONS (4)
  - Contusion [Unknown]
  - Salivary gland disorder [Unknown]
  - Abnormal sensation in eye [Unknown]
  - Coagulopathy [Unknown]

NARRATIVE: CASE EVENT DATE: 202011
